FAERS Safety Report 9058660 (Version 1)
Quarter: 2013Q1

REPORT INFORMATION
  Report Type: Spontaneous
  Country: US (occurrence: US)
  Receive Date: 20130204
  Receipt Date: 20130204
  Transmission Date: 20140127
  Serious: No
  Sender: FDA-Public Use
  Company Number: US-GLAXOSMITHKLINE-A1000907A

PATIENT
  Age: 72 Year
  Sex: Male

DRUGS (12)
  1. HORIZANT [Suspect]
     Indication: NEUROPATHY PERIPHERAL
     Dosage: 600MG PER DAY
     Route: 048
     Dates: start: 20121112, end: 20121115
  2. OXYCODONE [Concomitant]
  3. QUINAPRIL [Concomitant]
  4. VITAMIN B-12 [Concomitant]
  5. VITAMIN B-1 [Concomitant]
  6. FOLIC ACID [Concomitant]
  7. MAGNESIUM [Concomitant]
  8. CALCIUM WITH VITAMIN D [Concomitant]
  9. PROTONIX [Concomitant]
  10. LOVENOX [Concomitant]
  11. SENOKOT [Concomitant]
  12. MIRALAX [Concomitant]

REACTIONS (4)
  - Diarrhoea [Recovered/Resolved]
  - Somnolence [Unknown]
  - Myalgia [Recovered/Resolved]
  - Musculoskeletal stiffness [Recovered/Resolved]
